FAERS Safety Report 7083137-0 (Version None)
Quarter: 2010Q4

REPORT INFORMATION
  Report Type: 
  Country: None (occurrence: None)
  Receive Date: 20101104
  Receipt Date: 20101101
  Transmission Date: 20110411
  Serious: Yes (Death, Hospitalization, Other)
  Sender: FDA-Public Use
  Company Number: US-CELGENEUS-163-21880-10091967

PATIENT
  Sex: Male

DRUGS (4)
  1. REVLIMID [Suspect]
     Route: 048
     Dates: start: 20100827, end: 20100901
  2. ASPIRIN [Concomitant]
     Route: 065
  3. FLOMAX [Concomitant]
     Route: 065
  4. MULTI-VITAMINS [Concomitant]
     Route: 065

REACTIONS (8)
  - ANAEMIA [None]
  - BACK PAIN [None]
  - CONSTIPATION [None]
  - DECREASED APPETITE [None]
  - NAUSEA [None]
  - PNEUMONIA [None]
  - RASH [None]
  - SEPTIC SHOCK [None]
